FAERS Safety Report 8251869-4 (Version None)
Quarter: 2012Q2

REPORT INFORMATION
  Report Type: 
  Country: None (occurrence: None)
  Receive Date: 20120402
  Receipt Date: 20120330
  Transmission Date: 20120825
  Serious: Yes (Death)
  Sender: FDA-Public Use
  Company Number: PHEH2012US005882

PATIENT
  Sex: Male

DRUGS (11)
  1. ASPIRIN [Concomitant]
     Dosage: 81 MG, QD
     Route: 048
  2. TRAZODONE HCL [Concomitant]
     Dosage: 100 MG, PRN
  3. GILENYA [Suspect]
     Indication: MULTIPLE SCLEROSIS
     Dosage: 0.5 MG, QD
     Route: 048
     Dates: start: 20111011
  4. LEVEMIR [Concomitant]
     Route: 058
  5. CYMBALTA [Concomitant]
     Dosage: 30 MG, QD
     Route: 048
  6. LYRICA [Concomitant]
     Dosage: 50 MG, TID
     Route: 048
  7. PEPCID [Concomitant]
     Dosage: 20 MG, QD
  8. CYMBALTA [Concomitant]
     Dosage: 60 MG, QD
     Route: 048
  9. NOVOLOG [Concomitant]
     Dosage: 16 U, TID
     Route: 058
  10. LIPITOR [Concomitant]
     Dosage: 40 MG, QD
     Route: 048
  11. SOLARCAINE [Concomitant]

REACTIONS (2)
  - DEATH [None]
  - BLOOD PRESSURE SYSTOLIC INCREASED [None]
